FAERS Safety Report 7744038-5 (Version None)
Quarter: 2011Q3

REPORT INFORMATION
  Report Type: 
  Country: None (occurrence: None)
  Receive Date: 20110909
  Receipt Date: 20110909
  Transmission Date: 20111222
  Serious: Yes (Disabling, Other)
  Sender: FDA-Public Use
  Company Number: None

PATIENT
  Age: 28 Year
  Sex: Female
  Weight: 80.7403 kg

DRUGS (2)
  1. PRISTIQ [Suspect]
     Indication: DEPRESSION
     Dosage: 50MG 1 DAY
  2. PRISTIQ [Suspect]
     Indication: ANXIETY
     Dosage: 50MG 1 DAY

REACTIONS (20)
  - ANXIETY [None]
  - NIGHTMARE [None]
  - ABDOMINAL PAIN UPPER [None]
  - PAIN [None]
  - CHEST PAIN [None]
  - HALLUCINATION [None]
  - HOT FLUSH [None]
  - PALPITATIONS [None]
  - ANGER [None]
  - CONSTIPATION [None]
  - DEPRESSION [None]
  - BLOOD GLUCOSE DECREASED [None]
  - MEMORY IMPAIRMENT [None]
  - DYSPEPSIA [None]
  - CONFUSIONAL STATE [None]
  - BLOOD PRESSURE INCREASED [None]
  - DISCOMFORT [None]
  - MIGRAINE [None]
  - FEELING COLD [None]
  - INSOMNIA [None]
